FAERS Safety Report 9393648 (Version 2)
Quarter: 2013Q3

REPORT INFORMATION
  Report Type: Report from Study
  Country: DE (occurrence: DE)
  Receive Date: 20130710
  Receipt Date: 20130711
  Transmission Date: 20140515
  Serious: Yes (Life-Threatening, Hospitalization)
  Sender: FDA-Public Use
  Company Number: DE-TEVA-416514ISR

PATIENT
  Age: 65 Year
  Sex: Female

DRUGS (5)
  1. PACLITAXEL [Suspect]
     Indication: OVARIAN CANCER
     Dosage: LAST DOSE PRIOR TO EVENT:31/AUG/2012 (290 MG)
     Route: 042
     Dates: start: 20120518, end: 20130415
  2. CARBOPLATIN [Suspect]
     Indication: OVARIAN CANCER
     Dosage: LAST DOSE PRIOR TO EVENT:31/AUG/2012, DAILY DOSE:AUC 5=410 MG (410 MG,1 IN 3 WK)
     Route: 042
     Dates: start: 20120518, end: 20130415
  3. BEVACIZUMAB [Suspect]
     Indication: OVARIAN CANCER
     Dosage: LAST DOSE PRIOR TO EVENT:18/FEB/2013 (780 MG,1 IN 3 WK)
     Route: 042
     Dates: start: 20120518, end: 20130415
  4. BISOPROLOL [Concomitant]
     Route: 048
     Dates: start: 20120520
  5. AMLODIPINE [Concomitant]
     Route: 048
     Dates: start: 20120519

REACTIONS (3)
  - Cardiac failure [Recovering/Resolving]
  - Mitral valve incompetence [Recovering/Resolving]
  - Cardiac failure congestive [Recovering/Resolving]
